FAERS Safety Report 25602054 (Version 4)
Quarter: 2025Q4

REPORT INFORMATION
  Report Type: Report from Study
  Country: US (occurrence: US)
  Receive Date: 20250724
  Receipt Date: 20251106
  Transmission Date: 20260118
  Serious: Yes (Hospitalization)
  Sender: NOVARTIS
  Company Number: US-002147023-NVSC2025US086188

PATIENT
  Age: 68 Year
  Sex: Male
  Weight: 81.64 kg

DRUGS (3)
  1. LEQVIO [Suspect]
     Active Substance: INCLISIRAN SODIUM
     Indication: Type V hyperlipidaemia
     Dosage: 284 MG, PRN
     Route: 058
     Dates: start: 20220101, end: 202403
  2. LEQVIO [Suspect]
     Active Substance: INCLISIRAN SODIUM
     Dosage: 284 MG (FOR THE PAST 3 YEARS)
     Route: 058
  3. LEQVIO [Suspect]
     Active Substance: INCLISIRAN SODIUM
     Dosage: 284 MG (ONE SINGLE DOSE)
     Route: 058
     Dates: start: 20250311

REACTIONS (8)
  - Heart valve stenosis [Unknown]
  - Wrong product administered [Recovered/Resolved]
  - Chest pain [Unknown]
  - Injection site pain [Unknown]
  - Arterial disorder [Unknown]
  - Product dose omission issue [Unknown]
  - Low density lipoprotein increased [Unknown]
  - Pain [Unknown]

NARRATIVE: CASE EVENT DATE: 20250311
